FAERS Safety Report 7033092-4 (Version None)
Quarter: 2010Q4

REPORT INFORMATION
  Report Type: 
  Country: None (occurrence: None)
  Receive Date: 20101004
  Receipt Date: 20100917
  Transmission Date: 20110411
  Serious: Yes (Death)
  Sender: FDA-Public Use
  Company Number: TRP_07268_2010

PATIENT

DRUGS (3)
  1. AMPHOTERICIN B [Suspect]
     Indication: SYSTEMIC MYCOSIS
     Dosage: (2 MG/KG PER DAY) ; (5 MG/KG PER DAY) ; (4.5 MG/KG PER DAY) ; (10 MG/KG PER DAY) ; (DF)
  2. POSACONAZOLE [Suspect]
     Indication: SYSTEMIC MYCOSIS
     Dosage: (DF)
  3. AMPHOTERICIN B [Suspect]
     Indication: FUNGAL INFECTION
     Dosage: (DF)

REACTIONS (7)
  - CENTRAL NERVOUS SYSTEM INFECTION [None]
  - DRUG TOXICITY [None]
  - INFECTION [None]
  - MALIGNANT NEOPLASM PROGRESSION [None]
  - MYOCARDIAL INFARCTION [None]
  - TREATMENT FAILURE [None]
  - VIRAL INFECTION [None]
